FAERS Safety Report 8841316 (Version 3)
Quarter: 2014Q2

REPORT INFORMATION
  Report Type: Spontaneous
  Country: CH (occurrence: CH)
  Receive Date: 20121015
  Receipt Date: 20131018
  Transmission Date: 20141212
  Serious: Yes (Hospitalization)
  Sender: FDA-Public Use
  Company Number: CH-PFIZER INC-2012248836

PATIENT
  Age: 60 Year
  Sex: Female

DRUGS (22)
  1. SOLU-MEDROL [Suspect]
     Indication: CHRONIC OBSTRUCTIVE PULMONARY DISEASE
     Dosage: 125 MG, SINGLE
     Route: 041
     Dates: start: 20120614, end: 20120614
  2. NEXIUM MUPS [Suspect]
     Indication: GASTRIC ULCER
     Dosage: 40 MG, 1X/DAY
     Route: 048
     Dates: start: 20120614, end: 20120615
  3. FENTANYL [Suspect]
     Indication: ANAESTHESIA
     Dosage: 75 UG, SINGLE
     Route: 040
     Dates: start: 20120614, end: 20120614
  4. TORASEMIDE [Concomitant]
     Dosage: 10 MG, 1X/DAY
     Route: 048
  5. SYMBICORT [Concomitant]
     Dosage: 400/12 UG, TWICE DAILY
  6. SERETIDE [Concomitant]
     Dosage: SALMETEROL 500UG/FLUTICASONE 50 UG, TWICE DAILY
  7. TAZOBAC [Concomitant]
     Indication: BRONCHITIS BACTERIAL
     Dosage: 4.5 G, 1X/DAY
     Route: 048
     Dates: start: 20120616, end: 20120623
  8. TAZOBAC [Concomitant]
     Indication: PNEUMONIA
     Dosage: 4.5 G, SINGLE
     Route: 048
     Dates: start: 20120614, end: 20120614
  9. ETOMIDATE [Concomitant]
     Dosage: 10 MG, SINGLE
     Route: 040
     Dates: start: 20120614, end: 20120614
  10. SUCCICHOLINE [Concomitant]
     Dosage: 80 MG, SINGLE
     Route: 040
     Dates: start: 20120614, end: 20120614
  11. ROCURONIUM [Concomitant]
     Dosage: 40 MG, SINGLE
     Route: 040
     Dates: start: 20120614, end: 20120614
  12. PHENYLEPHRINE [Concomitant]
     Dosage: 100 UG, UNK
     Route: 040
     Dates: start: 20120614, end: 20120614
  13. NOREPINEPHRINE [Concomitant]
     Dosage: 3 UG/MIN
     Route: 041
     Dates: start: 20120614, end: 20120614
  14. PREDNISONE [Concomitant]
     Dosage: 20 MG, 1X/DAY
     Dates: start: 20120614, end: 20120616
  15. INSULIN PORCINE [Concomitant]
     Dosage: UNK
     Route: 041
     Dates: start: 20120614, end: 20120616
  16. DOBUTAMINE [Concomitant]
     Dosage: UNK
     Route: 041
     Dates: start: 20120614, end: 20120618
  17. LASIX [Concomitant]
     Dosage: 10 MG, SINGLE
     Route: 042
     Dates: start: 20120615, end: 20120615
  18. HEPARINE [Concomitant]
     Dosage: 5000 IU/24 H
     Dates: start: 20120617, end: 20120618
  19. FONDAPARINUX [Concomitant]
     Dosage: 2.5 MG, 1X/DAY
     Route: 058
     Dates: start: 20120617
  20. ENALAPRIL [Concomitant]
     Dosage: 10 MG, 1X/DAY
     Dates: start: 20120617
  21. FOLIC ACID [Concomitant]
     Dosage: 1 MG, 1X/DAY
     Dates: start: 20120617
  22. MIDAZOLAM [Concomitant]
     Dosage: UNK
     Dates: start: 20120614, end: 20120616

REACTIONS (1)
  - Thrombocytopenia [Recovered/Resolved]
